FAERS Safety Report 19066935 (Version 3)
Quarter: 2021Q2

REPORT INFORMATION
  Report Type: Spontaneous
  Country: CH (occurrence: CH)
  Receive Date: 20210329
  Receipt Date: 20210427
  Transmission Date: 20210717
  Serious: No
  Sender: FDA-Public Use
  Company Number: CH-ASTELLAS-2021US007517

PATIENT
  Age: 67 Year
  Sex: Male

DRUGS (7)
  1. PROSTAPLANT [SERENOA REPENS EXTRACT;URTICA DIOICA EXTRACT] [Concomitant]
     Indication: BENIGN PROSTATIC HYPERPLASIA
     Dosage: 280 MG, TWICE DAILY (2 X 280MG DAILY)
     Route: 048
  2. TAMSULOSIN [Concomitant]
     Active Substance: TAMSULOSIN
     Indication: BENIGN PROSTATIC HYPERPLASIA
     Dosage: UNK UNK, UNKNOWN FREQ.
     Route: 065
  3. BETMIGA [Suspect]
     Active Substance: MIRABEGRON
     Indication: BENIGN PROSTATIC HYPERPLASIA
     Route: 048
     Dates: start: 20191003, end: 20191220
  4. TORASEMID MEPHA [Concomitant]
     Active Substance: TORSEMIDE
     Indication: OEDEMA
  5. TORASEMID MEPHA [Concomitant]
     Active Substance: TORSEMIDE
     Indication: HYPERTENSION
     Route: 048
  6. BETMIGA [Suspect]
     Active Substance: MIRABEGRON
     Indication: PRODUCT INTOLERANCE
  7. TARKA [Concomitant]
     Active Substance: TRANDOLAPRIL\VERAPAMIL HYDROCHLORIDE
     Indication: HYPERTENSION
     Dosage: 1 DF, ONCE DAILY (1 X 2MG/180MG)
     Route: 048

REACTIONS (2)
  - Product use in unapproved indication [Unknown]
  - Blood glucose increased [Recovered/Resolved]

NARRATIVE: CASE EVENT DATE: 20191003
